FAERS Safety Report 8031442-3 (Version None)
Quarter: 2012Q1

REPORT INFORMATION
  Report Type: 
  Country: None (occurrence: None)
  Receive Date: 20120109
  Receipt Date: 20111229
  Transmission Date: 20120608
  Serious: Yes (Other)
  Sender: FDA-Public Use
  Company Number: CHPA2011US018752

PATIENT
  Age: 61 Year
  Sex: Female

DRUGS (5)
  1. REMERON [Concomitant]
     Indication: DEPRESSION
     Dosage: LOW DOSE
  2. LORAZEPAM [Concomitant]
     Indication: INSOMNIA
     Dosage: UNK DF, UNK
  3. NIFEDIPINE [Concomitant]
     Indication: ANGINA PECTORIS
     Dosage: UNK DF, UNK
  4. ACETAMINOPHEN [Concomitant]
     Dosage: UNK DF, IN THE MORNING
  5. EXCEDRIN (MIGRAINE) [Suspect]
     Indication: HEADACHE
     Dosage: 1-2 DF, UNK
     Route: 048
     Dates: end: 20111201

REACTIONS (7)
  - UNDERDOSE [None]
  - CONCOMITANT DISEASE AGGRAVATED [None]
  - FLATULENCE [None]
  - AUTOIMMUNE DISORDER [None]
  - NAUSEA [None]
  - ABDOMINAL DISCOMFORT [None]
  - PALPITATIONS [None]
